FAERS Safety Report 22196949 (Version 1)
Quarter: 2023Q2

REPORT INFORMATION
  Report Type: Spontaneous
  Country: None (occurrence: CA)
  Receive Date: 20230411
  Receipt Date: 20230411
  Transmission Date: 20230722
  Serious: Yes (Hospitalization, Other)
  Sender: FDA-Public Use
  Company Number: CA-B.Braun Medical Inc.-2140144

PATIENT
  Age: 71 Year
  Sex: Female
  Weight: 69 kg

DRUGS (93)
  1. ACETAMINOPHEN [Suspect]
     Active Substance: ACETAMINOPHEN
  2. ACETAMINOPHEN\PROPOXYPHENE [Suspect]
     Active Substance: ACETAMINOPHEN\PROPOXYPHENE
  3. ACETAMINOPHEN\PSEUDOEPHEDRINE HYDROCHLORIDE [Suspect]
     Active Substance: ACETAMINOPHEN\PSEUDOEPHEDRINE HYDROCHLORIDE
  4. ACETIC ACID\TRIAMCINOLONE [Suspect]
     Active Substance: ACETIC ACID\TRIAMCINOLONE
  5. ASPIRIN [Suspect]
     Active Substance: ASPIRIN
  6. ASPIRIN\CITRIC ACID\SODIUM BICARBONATE [Suspect]
     Active Substance: ASPIRIN\CITRIC ACID MONOHYDRATE\SODIUM BICARBONATE
  7. ALPRAZOLAM [Suspect]
     Active Substance: ALPRAZOLAM
  8. AMBROXOL HYDROCHLORIDE [Suspect]
     Active Substance: AMBROXOL HYDROCHLORIDE
  9. AMOXICILLIN TRIHYDRATE [Suspect]
     Active Substance: AMOXICILLIN
  10. PREGABALIN [Suspect]
     Active Substance: PREGABALIN
  11. ATORVASTATIN CALCIUM [Suspect]
     Active Substance: ATORVASTATIN CALCIUM
  12. ATROPINE SULFATE\DIPHENOXYLATE HYDROCHLORIDE [Suspect]
     Active Substance: ATROPINE SULFATE\DIPHENOXYLATE HYDROCHLORIDE
  13. AZITHROMYCIN [Suspect]
     Active Substance: AZITHROMYCIN
  14. BENZYDAMINE [Suspect]
     Active Substance: BENZYDAMINE
  15. BETAMETHASONE DIPROPIONATE [Suspect]
     Active Substance: BETAMETHASONE DIPROPIONATE
  16. BETAMETHASONE VALERATE [Suspect]
     Active Substance: BETAMETHASONE VALERATE
  17. BIAXIN [Suspect]
     Active Substance: CLARITHROMYCIN
  18. BIFIDOBACTERIUM LONGUM SUBSP. INFANTIS [Suspect]
     Active Substance: BIFIDOBACTERIUM LONGUM SUBSP. INFANTIS
  19. BISACODYL [Suspect]
     Active Substance: BISACODYL
  20. BUDESONIDE [Suspect]
     Active Substance: BUDESONIDE
  21. CALCITRIOL\CALCIUM CARBONATE\ZINC [Suspect]
     Active Substance: CALCITRIOL\CALCIUM CARBONATE\ZINC
  22. CALCIUM\VITAMIN D [Suspect]
     Active Substance: CALCIUM\VITAMIN D
  23. CALCIUM CARBONATE\CALCIUM GLUCONATE\CALCIUM LACTATE [Suspect]
     Active Substance: CALCIUM CARBONATE\CALCIUM GLUCONATE\CALCIUM LACTATE
  24. CALCIUM CARBONATE\CHOLECALCIFEROL\ZINC [Suspect]
     Active Substance: CALCIUM CARBONATE\CHOLECALCIFEROL\ZINC
  25. CETIRIZINE HYDROCHLORIDE [Suspect]
     Active Substance: CETIRIZINE HYDROCHLORIDE
  26. CIPROFLOXACIN [Suspect]
     Active Substance: CIPROFLOXACIN
  27. CIPROFLOXACIN HYDROCHLORIDE [Suspect]
     Active Substance: CIPROFLOXACIN HYDROCHLORIDE
  28. CLARITHROMYCIN [Suspect]
     Active Substance: CLARITHROMYCIN
  29. CLOTRIMAZOLE [Suspect]
     Active Substance: CLOTRIMAZOLE
  30. CORTENEMA [Suspect]
     Active Substance: HYDROCORTISONE
  31. CUPRIC OXIDE\FOLIC ACID\NIACINAMIDE\ZINC OXIDE [Suspect]
     Active Substance: CUPRIC OXIDE\FOLIC ACID\NIACINAMIDE\ZINC OXIDE
  32. VITAMIN E\VITAMINS [Suspect]
     Active Substance: .ALPHA.-TOCOPHEROL\VITAMINS
  33. VITAMIN E\VITAMINS [Suspect]
     Active Substance: .ALPHA.-TOCOPHEROL\VITAMINS
  34. DESONIDE [Suspect]
     Active Substance: DESONIDE
  35. DIPHENHYDRAMINE HYDROCHLORIDE [Suspect]
     Active Substance: DIPHENHYDRAMINE HYDROCHLORIDE
  36. ENTYVIO [Suspect]
     Active Substance: VEDOLIZUMAB
  37. ERTAPENEM SODIUM [Suspect]
     Active Substance: ERTAPENEM SODIUM
  38. FENTANYL [Suspect]
     Active Substance: FENTANYL
  39. FENTANYL CITRATE [Suspect]
     Active Substance: FENTANYL CITRATE
  40. FLUCONAZOLE [Suspect]
     Active Substance: FLUCONAZOLE
  41. FLUTICASONE FUROATE [Suspect]
     Active Substance: FLUTICASONE FUROATE
  42. FLUTICASONE PROPIONATE [Suspect]
     Active Substance: FLUTICASONE PROPIONATE
  43. FRAMYCETIN SULFATE [Suspect]
     Active Substance: FRAMYCETIN SULFATE
  44. FRUCTOSE [Suspect]
     Active Substance: FRUCTOSE
  45. GLYCERIN [Suspect]
     Active Substance: GLYCERIN
  46. NITROGLYCERIN [Suspect]
     Active Substance: NITROGLYCERIN
  47. GRAMICIDIN\NEOMYCIN SULFATE\POLYMYXIN B SULFATE [Suspect]
     Active Substance: GRAMICIDIN\NEOMYCIN SULFATE\POLYMYXIN B SULFATE
  48. HUMIRA [Suspect]
     Active Substance: ADALIMUMAB
  49. HYDROCHLOROTHIAZIDE [Suspect]
     Active Substance: HYDROCHLOROTHIAZIDE
  50. HYDROCORTISONE [Suspect]
     Active Substance: HYDROCORTISONE
  51. HYDROMORPHONE HYDROCHLORIDE [Suspect]
     Active Substance: HYDROMORPHONE HYDROCHLORIDE
  52. ISONIAZID\PYRIDOXINE\SULFAMETHOXAZOLE\TRIMETHOPRIM [Suspect]
     Active Substance: ISONIAZID\PYRIDOXINE\SULFAMETHOXAZOLE\TRIMETHOPRIM
  53. ISONIAZID\PYRIDOXINE\SULFAMETHOXAZOLE\TRIMETHOPRIM [Suspect]
     Active Substance: ISONIAZID\PYRIDOXINE\SULFAMETHOXAZOLE\TRIMETHOPRIM
  54. LOPERAMIDE HYDROCHLORIDE [Suspect]
     Active Substance: LOPERAMIDE HYDROCHLORIDE
  55. ELECTROLYTES NOS\POLYETHYLENE GLYCOLS [Suspect]
     Active Substance: ELECTROLYTES NOS\POLYETHYLENE GLYCOLS
  56. CHLORIDE ION [Suspect]
     Active Substance: CHLORIDE ION
  57. MAGNESIUM CARBONATE [Suspect]
     Active Substance: MAGNESIUM CARBONATE
  58. MAGNESIUM SULFATE [Suspect]
     Active Substance: MAGNESIUM SULFATE
  59. MAGNESIUM OXIDE [Suspect]
     Active Substance: MAGNESIUM OXIDE
  60. METRONIDAZOLE [Suspect]
     Active Substance: METRONIDAZOLE
  61. MAGNESIUM SULFATE [Suspect]
     Active Substance: MAGNESIUM SULFATE
  62. MESALAMINE [Suspect]
     Active Substance: MESALAMINE
  63. METHYLPREDNISOLONE SODIUM SUCCINATE [Suspect]
     Active Substance: METHYLPREDNISOLONE SODIUM SUCCINATE
  64. MIDAZOLAM [Suspect]
     Active Substance: MIDAZOLAM
  65. MORPHINE SULFATE [Suspect]
     Active Substance: MORPHINE SULFATE
  66. MUPIROCIN [Suspect]
     Active Substance: MUPIROCIN
  67. NADOLOL [Suspect]
     Active Substance: NADOLOL
  68. NICODERM CQ [Suspect]
     Active Substance: NICOTINE
  69. NICOTINAMIDE [Suspect]
     Active Substance: NIACINAMIDE
  70. NICOTINE [Suspect]
     Active Substance: NICOTINE
  71. OXYBUTYNIN CHLORIDE [Suspect]
     Active Substance: OXYBUTYNIN CHLORIDE
  72. PANTOPRAZOLE [Suspect]
     Active Substance: PANTOPRAZOLE
  73. POTASSIUM CHLORIDE [Suspect]
     Active Substance: POTASSIUM CHLORIDE
  74. PREDNISONE [Suspect]
     Active Substance: PREDNISONE
  75. PYRIDOXINE [Suspect]
     Active Substance: PYRIDOXINE
  76. REFRESH TEARS [Suspect]
     Active Substance: CARBOXYMETHYLCELLULOSE SODIUM
  77. UNSPECIFIED INGREDIENT [Suspect]
     Active Substance: UNSPECIFIED INGREDIENT
  78. HERBALS [Suspect]
     Active Substance: HERBALS
  79. SODIUM BICARBONATE\SODIUM CHLORIDE [Suspect]
     Active Substance: SODIUM BICARBONATE\SODIUM CHLORIDE
  80. CARBOXYMETHYLCELLULOSE SODIUM [Suspect]
     Active Substance: CARBOXYMETHYLCELLULOSE SODIUM
  81. SODIUM STEARATE [Suspect]
     Active Substance: SODIUM STEARATE
  82. SUCRALFATE [Suspect]
     Active Substance: SUCRALFATE
  83. SULFAMETHOXAZOLE\TRIMETHOPRIM [Suspect]
     Active Substance: SULFAMETHOXAZOLE\TRIMETHOPRIM
  84. TRIAMCINOLONE [Suspect]
     Active Substance: TRIAMCINOLONE
  85. TRIAMCINOLONE ACETONIDE [Suspect]
     Active Substance: TRIAMCINOLONE ACETONIDE
  86. TRIMETHOPRIM [Suspect]
     Active Substance: TRIMETHOPRIM
  87. UBIDECARENONE [Suspect]
     Active Substance: UBIDECARENONE
  88. VALSARTAN [Suspect]
     Active Substance: VALSARTAN
  89. VITAMIN D3 [Suspect]
     Active Substance: CHOLECALCIFEROL
  90. XANTOFYL PALMITATE [Suspect]
     Active Substance: XANTOFYL PALMITATE
  91. ZEAXANTHIN [Suspect]
     Active Substance: ZEAXANTHIN
  92. ZINC OXIDE [Suspect]
     Active Substance: ZINC OXIDE
  93. ZOPICLONE [Suspect]
     Active Substance: ZOPICLONE

REACTIONS (30)
  - Abdominal pain [Not Recovered/Not Resolved]
  - Anaemia [Not Recovered/Not Resolved]
  - Chronic sinusitis [Not Recovered/Not Resolved]
  - Colitis [Not Recovered/Not Resolved]
  - Colitis ulcerative [Not Recovered/Not Resolved]
  - Constipation [Not Recovered/Not Resolved]
  - Drug ineffective [Not Recovered/Not Resolved]
  - Dyspepsia [Not Recovered/Not Resolved]
  - Erythema [Not Recovered/Not Resolved]
  - Female genital tract fistula [Not Recovered/Not Resolved]
  - Frequent bowel movements [Not Recovered/Not Resolved]
  - Haematochezia [Not Recovered/Not Resolved]
  - Headache [Not Recovered/Not Resolved]
  - Infusion related reaction [Not Recovered/Not Resolved]
  - Macular degeneration [Not Recovered/Not Resolved]
  - Malaise [Not Recovered/Not Resolved]
  - Nausea [Not Recovered/Not Resolved]
  - Off label use [Not Recovered/Not Resolved]
  - Oral candidiasis [Not Recovered/Not Resolved]
  - Pain [Not Recovered/Not Resolved]
  - Paraesthesia oral [Not Recovered/Not Resolved]
  - Procedural pain [Not Recovered/Not Resolved]
  - Proctitis [Not Recovered/Not Resolved]
  - Pyrexia [Not Recovered/Not Resolved]
  - Radiculopathy [Not Recovered/Not Resolved]
  - Rectal haemorrhage [Not Recovered/Not Resolved]
  - Therapeutic product effect incomplete [Not Recovered/Not Resolved]
  - Vaginal discharge [Not Recovered/Not Resolved]
  - Vaginal flatulence [Not Recovered/Not Resolved]
  - Weight decreased [Not Recovered/Not Resolved]
